FAERS Safety Report 25044107 (Version 1)
Quarter: 2025Q1

REPORT INFORMATION
  Report Type: Report from Study
  Country: GR (occurrence: GR)
  Receive Date: 20250306
  Receipt Date: 20250306
  Transmission Date: 20250408
  Serious: Yes (Hospitalization)
  Sender: CSL BEHRING
  Company Number: GR-BEH-2025197762

PATIENT
  Sex: Male
  Weight: 105 kg

DRUGS (1)
  1. HIZENTRA [Suspect]
     Active Substance: HUMAN IMMUNOGLOBULIN G
     Indication: Secondary immunodeficiency
     Dosage: 480 ML, QMT
     Route: 058
     Dates: start: 20241107

REACTIONS (2)
  - Jaundice [Recovered/Resolved]
  - Influenza [Recovered/Resolved]
